FAERS Safety Report 13051106 (Version 2)
Quarter: 2017Q1

REPORT INFORMATION
  Report Type: Spontaneous
  Country: US (occurrence: US)
  Receive Date: 20161221
  Receipt Date: 20170202
  Transmission Date: 20170428
  Serious: No
  Sender: FDA-Public Use
  Company Number: US-PFIZER INC-2016589981

PATIENT
  Sex: Female

DRUGS (1)
  1. XELJANZ [Suspect]
     Active Substance: TOFACITINIB CITRATE
     Dosage: UNK

REACTIONS (7)
  - Arthralgia [Unknown]
  - Temperature intolerance [Unknown]
  - Weight decreased [Unknown]
  - Memory impairment [Unknown]
  - Sensory loss [Unknown]
  - Musculoskeletal stiffness [Unknown]
  - Muscle spasms [Unknown]
